FAERS Safety Report 9498395 (Version 1)
Quarter: 2013Q3

REPORT INFORMATION
  Report Type: Spontaneous
  Country: US (occurrence: None)
  Receive Date: 20130903
  Receipt Date: 20130903
  Transmission Date: 20140515
  Serious: Yes (Other)
  Sender: FDA-Public Use
  Company Number: None

PATIENT
  Age: 49 Year
  Sex: Female
  Weight: 61.4 kg

DRUGS (2)
  1. SYNTHROID [Suspect]
     Indication: HYPOTHYROIDISM
     Dosage: 200 MICROGRAMS DAILY ORAL
     Route: 048
     Dates: start: 20130711, end: 20130816
  2. LIDEX OINTMENT  0.05% [Concomitant]

REACTIONS (6)
  - Pruritus [None]
  - Rash erythematous [None]
  - Urticaria [None]
  - Alopecia [None]
  - Hair disorder [None]
  - Trichorrhexis [None]
